FAERS Safety Report 25344354 (Version 1)
Quarter: 2025Q2

REPORT INFORMATION
  Report Type: Report from Study
  Country: ZA (occurrence: ZA)
  Receive Date: 20250521
  Receipt Date: 20250521
  Transmission Date: 20250716
  Serious: Yes (Other)
  Sender: ALEXION PHARMACEUTICALS
  Company Number: ZA-AstraZeneca-CH-00872553A

PATIENT
  Age: 55 Year

DRUGS (6)
  1. BUDESONIDE\FORMOTEROL [Suspect]
     Active Substance: BUDESONIDE\FORMOTEROL
     Indication: Asthma
  2. TEGRETOL XR [Concomitant]
     Active Substance: CARBAMAZEPINE
     Indication: Epilepsy
  3. Advantan milk [Concomitant]
     Route: 065
  4. MINOXIDIL [Concomitant]
     Active Substance: MINOXIDIL
  5. Fenak [Concomitant]
     Route: 065
  6. ACETAMINOPHEN\ORPHENADRINE CITRATE [Concomitant]
     Active Substance: ACETAMINOPHEN\ORPHENADRINE CITRATE
     Route: 065

REACTIONS (1)
  - Trigeminal neuralgia [Unknown]
